FAERS Safety Report 23273484 (Version 1)
Quarter: 2023Q4

REPORT INFORMATION
  Report Type: Spontaneous
  Country: US (occurrence: US)
  Receive Date: 20231207
  Receipt Date: 20231207
  Transmission Date: 20240110
  Serious: No
  Sender: FDA-Public Use
  Company Number: US-AMERICAN REGENT INC-2022003285

PATIENT
  Age: 78 Year
  Sex: Male
  Weight: 86.2 kg

DRUGS (5)
  1. VENOFER [Suspect]
     Active Substance: IRON SUCROSE
     Indication: Iron deficiency anaemia
     Dosage: 200 MILLIGRAM IN 100 ML OF NORMAL SALINE
     Route: 042
     Dates: start: 20221103, end: 20221103
  2. VENOFER [Suspect]
     Active Substance: IRON SUCROSE
     Dosage: 200 MILLIGRAM IN 100 ML OF NORMAL SALINE (SCHEDULED OVER 15 MINS)
     Dates: start: 20221110, end: 20221110
  3. VENOFER [Suspect]
     Active Substance: IRON SUCROSE
     Dosage: 200 MILLIGRAM IN 100 ML OF NORMAL SALINE
     Route: 042
     Dates: start: 20221117, end: 20221117
  4. VENOFER [Suspect]
     Active Substance: IRON SUCROSE
     Dosage: 200 MILLIGRAM IN 100 ML OF NORMAL SALINE
     Route: 042
     Dates: start: 20221201, end: 20221201
  5. VENOFER [Suspect]
     Active Substance: IRON SUCROSE
     Dosage: 200 MILLIGRAM IN 100 ML OF NORMAL SALINE
     Route: 042
     Dates: start: 20221208, end: 20221208

REACTIONS (4)
  - Injection site extravasation [Recovered/Resolved]
  - Injection site reaction [Not Recovered/Not Resolved]
  - Administration site discolouration [Recovered/Resolved]
  - Inappropriate schedule of product administration [Recovered/Resolved]

NARRATIVE: CASE EVENT DATE: 20221103
